FAERS Safety Report 12613497 (Version 1)
Quarter: 2016Q3

REPORT INFORMATION
  Report Type: Spontaneous
  Country: US (occurrence: None)
  Receive Date: 20160801
  Receipt Date: 20160801
  Transmission Date: 20161109
  Serious: Yes (Disabling, Other)
  Sender: FDA-Public Use
  Company Number: None

PATIENT
  Age: 87 Year
  Sex: Female
  Weight: 39.01 kg

DRUGS (10)
  1. HYDROCODONE [Concomitant]
     Active Substance: HYDROCODONE
  2. ELIQUIS [Concomitant]
     Active Substance: APIXABAN
  3. PACEMAKER [Concomitant]
  4. SYNTHROID [Concomitant]
     Active Substance: LEVOTHYROXINE SODIUM
  5. MEGESTROL ACET [Suspect]
     Active Substance: MEGESTROL ACETATE
     Indication: DECREASED APPETITE
     Dosage: 4 TEASPOON(S) ONCE A DAY TAKEN BY MOUTH
     Route: 048
     Dates: start: 20160715, end: 20160723
  6. MEGESTROL ACET [Suspect]
     Active Substance: MEGESTROL ACETATE
     Indication: WEIGHT DECREASED
     Dosage: 4 TEASPOON(S) ONCE A DAY TAKEN BY MOUTH
     Route: 048
     Dates: start: 20160715, end: 20160723
  7. LATANOPROST. [Concomitant]
     Active Substance: LATANOPROST
  8. DIAZEPAN [Concomitant]
     Active Substance: DIAZEPAM
  9. VERMIST [Concomitant]
  10. NITROSTAT [Concomitant]
     Active Substance: NITROGLYCERIN

REACTIONS (1)
  - Oral candidiasis [None]

NARRATIVE: CASE EVENT DATE: 20160725
